FAERS Safety Report 9436284 (Version 1)
Quarter: 2013Q3

REPORT INFORMATION
  Report Type: Spontaneous
  Country: FR (occurrence: FR)
  Receive Date: 20130802
  Receipt Date: 20130802
  Transmission Date: 20140515
  Serious: Yes (Hospitalization)
  Sender: FDA-Public Use
  Company Number: FR-JNJFOC-20130714142

PATIENT
  Age: 14 Year
  Sex: Female

DRUGS (4)
  1. IMODIUM [Suspect]
     Route: 048
  2. IMODIUM [Suspect]
     Indication: PRODUCT USED FOR UNKNOWN INDICATION
     Dosage: 2 MG , 10 DOSES PER DAY
     Route: 048
     Dates: start: 20130405, end: 20130405
  3. LEXOMIL [Suspect]
     Indication: INSOMNIA
     Route: 048
     Dates: start: 20130404, end: 20130405
  4. TOPALGIC [Suspect]
     Indication: PRODUCT USED FOR UNKNOWN INDICATION
     Route: 048
     Dates: start: 20130405, end: 20130405

REACTIONS (3)
  - Poisoning [Recovered/Resolved]
  - Toxicity to various agents [Recovered/Resolved]
  - Overdose [Recovered/Resolved]
